FAERS Safety Report 19196218 (Version 1)
Quarter: 2021Q2

REPORT INFORMATION
  Report Type: Spontaneous
  Country: US (occurrence: US)
  Receive Date: 20210429
  Receipt Date: 20210429
  Transmission Date: 20210717
  Serious: No
  Sender: FDA-Public Use
  Company Number: US-ASCEND THERAPEUTICS US, LLC-2110011

PATIENT
  Age: 37 Year
  Sex: Female

DRUGS (11)
  1. ESTRADIOL, NOS (ESTRADIOL) [Suspect]
     Active Substance: ESTRADIOL
     Route: 065
  2. FOLLISTIM AQ [Suspect]
     Active Substance: FOLLITROPIN
     Route: 058
     Dates: start: 20210123
  3. PUREGON (FOLLITROPIN BETA) [Suspect]
     Active Substance: FOLLITROPIN BETA
     Route: 065
  4. LETROZOLE. [Concomitant]
     Active Substance: LETROZOLE
     Route: 065
  5. PROGESTERONE IN OIL (PROGESTERONE), UNKNOWN [Suspect]
     Active Substance: PROGESTERONE
     Route: 065
  6. GANIRELIX ACETATE. [Concomitant]
     Active Substance: GANIRELIX ACETATE
     Route: 065
  7. ASPIRIN 81 (ACETYLSALICYLIC ACID) (81 MILLIGRAM), UNKNOWN [Concomitant]
     Route: 065
  8. MENOPUR [Concomitant]
     Active Substance: FOLLITROPIN\LUTEINIZING HORMONE
     Route: 065
  9. ESTROGEL [Suspect]
     Active Substance: ESTRADIOL
     Indication: PRODUCT USED FOR UNKNOWN INDICATION
     Route: 065
  10. ESTROGEL [Suspect]
     Active Substance: ESTRADIOL
  11. DOXYCYCLINE HYCLATE. [Concomitant]
     Active Substance: DOXYCYCLINE HYCLATE
     Route: 065

REACTIONS (1)
  - Fatigue [Unknown]
